FAERS Safety Report 6020463-8 (Version None)
Quarter: 2008Q4

REPORT INFORMATION
  Report Type: 
  Country: None (occurrence: None)
  Receive Date: 20081226
  Receipt Date: 20081218
  Transmission Date: 20090506
  Serious: Yes (Death)
  Sender: FDA-Public Use
  Company Number: CA-ROCHE-603917

PATIENT
  Sex: Male
  Weight: 95.5 kg

DRUGS (9)
  1. CAPECITABINE [Suspect]
     Dosage: ON DAYS 1 TO 14 EVERY 21 DAYS
     Route: 048
     Dates: start: 20081024, end: 20081214
  2. BEVACIZUMAB [Suspect]
     Route: 042
     Dates: start: 20081024, end: 20081205
  3. OXALIPLATIN [Suspect]
     Route: 042
     Dates: start: 20081024, end: 20081205
  4. IRINOTECAN HCL [Suspect]
     Route: 042
     Dates: start: 20081024, end: 20081205
  5. NORVASC [Concomitant]
     Dates: start: 19980101
  6. ASPIRIN [Concomitant]
     Dates: start: 20020101
  7. NABILONE [Concomitant]
     Dates: start: 20081112
  8. ZOFRAN [Concomitant]
     Dates: start: 20081112
  9. IMODIUM [Concomitant]
     Dates: start: 20081112

REACTIONS (1)
  - DEATH [None]
